FAERS Safety Report 5573566-6 (Version None)
Quarter: 2007Q4

REPORT INFORMATION
  Report Type: 
  Country: None (occurrence: None)
  Receive Date: 20071220
  Receipt Date: 20071220
  Transmission Date: 20080405
  Serious: Yes (Life-Threatening, Hospitalization, Other)
  Sender: FDA-Public Use
  Company Number: None

PATIENT
  Age: 43 Year
  Sex: Female
  Weight: 70.3075 kg

DRUGS (5)
  1. SEROQUEL [Suspect]
     Indication: ANXIETY
     Dosage: HALF OF ONE TABLET PER DAY PO
     Route: 048
     Dates: start: 20010202, end: 20060815
  2. SEROQUEL [Suspect]
     Indication: DELUSION
     Dosage: HALF OF ONE TABLET PER DAY PO
     Route: 048
     Dates: start: 20010202, end: 20060815
  3. SEROQUEL [Suspect]
     Indication: DEPRESSION
     Dosage: HALF OF ONE TABLET PER DAY PO
     Route: 048
     Dates: start: 20010202, end: 20060815
  4. SEROQUEL [Suspect]
     Indication: BIPOLAR DISORDER
     Dates: start: 20070927, end: 20071221
  5. SEROQUEL [Suspect]
     Indication: SLEEP DISORDER
     Dates: start: 20070927, end: 20071221

REACTIONS (18)
  - ALOPECIA [None]
  - ANXIETY [None]
  - BIPOLAR DISORDER [None]
  - CIRCADIAN RHYTHM SLEEP DISORDER [None]
  - DARK CIRCLES UNDER EYES [None]
  - DELUSION [None]
  - DEPRESSED MOOD [None]
  - DEPRESSION [None]
  - FEELING ABNORMAL [None]
  - LIBIDO DECREASED [None]
  - MALAISE [None]
  - NO THERAPEUTIC RESPONSE [None]
  - OVERDOSE [None]
  - PERIORBITAL OEDEMA [None]
  - SLEEP DISORDER [None]
  - SOMNOLENCE [None]
  - THINKING ABNORMAL [None]
  - WEIGHT INCREASED [None]
